FAERS Safety Report 5263089-6 (Version None)
Quarter: 2007Q1

REPORT INFORMATION
  Report Type: 
  Country: None (occurrence: None)
  Receive Date: 20061219
  Receipt Date: 20061113
  Transmission Date: 20070707
  Serious: No
  Sender: FDA-Public Use
  Company Number: 2006US002683

PATIENT
  Age: 85 Year
  Sex: Male

DRUGS (1)
  1. VESICARE [Suspect]
     Indication: DRUG USE FOR UNKNOWN INDICATION
     Dosage: 10 MG, UID/QD, ORAL
     Route: 048
     Dates: start: 20060101

REACTIONS (2)
  - CONSTIPATION [None]
  - DRY MOUTH [None]
